FAERS Safety Report 4323872-8 (Version None)
Quarter: 2004Q1

REPORT INFORMATION
  Report Type: 
  Country: None (occurrence: None)
  Receive Date: 20040326
  Receipt Date: 20030702
  Transmission Date: 20041129
  Serious: No
  Sender: FDA-Public Use
  Company Number: US-GLAXOSMITHKLINE-A0416357A

PATIENT
  Age: 38 Year
  Sex: Female
  Weight: 72.7 kg

DRUGS (2)
  1. ADVAIR DISKUS 100/50 [Suspect]
     Indication: ASTHMA
     Dosage: 1PUFF TWICE PER DAY
     Route: 025
     Dates: start: 20030601, end: 20030615
  2. PULMICORT [Concomitant]
     Indication: ASTHMA

REACTIONS (2)
  - DRUG EXPOSURE DURING PREGNANCY [None]
  - MUSCLE CRAMP [None]
